FAERS Safety Report 5285166-6 (Version None)
Quarter: 2007Q1

REPORT INFORMATION
  Report Type: 
  Country: None (occurrence: None)
  Receive Date: 20061229
  Receipt Date: 20060911
  Transmission Date: 20070707
  Serious: Yes (Other)
  Sender: FDA-Public Use
  Company Number: 2006UW17818

PATIENT
  Age: 51 Year
  Sex: Female
  Weight: 113.39 kg

DRUGS (5)
  1. CRESTOR [Suspect]
     Indication: BLOOD CHOLESTEROL INCREASED
     Dates: start: 20060401
  2. GLYBURIDE [Concomitant]
  3. COZAAR [Concomitant]
  4. ACTOS [Concomitant]
  5. AMITRIPTYLINE HCL [Concomitant]

REACTIONS (5)
  - ASTHENIA [None]
  - DIZZINESS [None]
  - INFLUENZA LIKE ILLNESS [None]
  - MYALGIA [None]
  - SYNCOPE [None]
